FAERS Safety Report 9901422 (Version 1)
Quarter: 2014Q1

REPORT INFORMATION
  Report Type: Spontaneous
  Country: US (occurrence: US)
  Receive Date: 20140217
  Receipt Date: 20140217
  Transmission Date: 20141002
  Serious: Yes (Hospitalization, Other)
  Sender: FDA-Public Use
  Company Number: US-PFIZER INC-2014040609

PATIENT
  Age: 58 Year
  Sex: Male
  Weight: 90.7 kg

DRUGS (5)
  1. NITROSTAT [Suspect]
     Indication: ANGINA PECTORIS
     Dosage: 0.4 MG, AS NEEDED
  2. CLOPIDOGREL [Concomitant]
     Dosage: 75 MG, DAILY
  3. AMIODARONE [Concomitant]
     Dosage: 200 MG, DAILY
  4. LISINOPRIL [Concomitant]
     Dosage: 5 MG, DAILY
  5. PRAVASTATIN [Concomitant]
     Dosage: 20 MG, DAILY

REACTIONS (4)
  - Myocardial infarction [Unknown]
  - Angina pectoris [Unknown]
  - Coronary artery thrombosis [Unknown]
  - Chest pain [Unknown]
